FAERS Safety Report 8450725-6 (Version None)
Quarter: 2012Q2

REPORT INFORMATION
  Report Type: 
  Country: None (occurrence: None)
  Receive Date: 20120620
  Receipt Date: 20120615
  Transmission Date: 20120825
  Serious: Yes (Other)
  Sender: FDA-Public Use
  Company Number: VE-PFIZER INC-2012138295

PATIENT
  Age: 39 Year
  Sex: Male

DRUGS (1)
  1. ZOLOFT [Suspect]
     Indication: ANXIETY
     Dosage: 100 MG, 1X/DAY
     Route: 048
     Dates: end: 20120301

REACTIONS (1)
  - CORONARY ARTERY DISEASE [None]
